FAERS Safety Report 25622862 (Version 1)
Quarter: 2025Q3

REPORT INFORMATION
  Report Type: Spontaneous
  Country: CA (occurrence: CA)
  Receive Date: 20250730
  Receipt Date: 20250730
  Transmission Date: 20251021
  Serious: Yes (Other)
  Sender: BRACCO
  Company Number: CA-BRACCO- 2025CA05229

PATIENT
  Age: 73 Year
  Sex: Female

DRUGS (1)
  1. MULTIHANCE [Suspect]
     Active Substance: GADOBENATE DIMEGLUMINE
     Indication: Scan with contrast
     Route: 050

REACTIONS (2)
  - Nausea [Unknown]
  - Unresponsive to stimuli [Unknown]
